FAERS Safety Report 13876552 (Version 4)
Quarter: 2017Q4

REPORT INFORMATION
  Report Type: Report from Study
  Country: LB (occurrence: LB)
  Receive Date: 20170817
  Receipt Date: 20171029
  Transmission Date: 20180320
  Serious: Yes (Death, Hospitalization)
  Sender: FDA-Public Use
  Company Number: PHHY2017LB120433

PATIENT
  Age: 62 Year
  Sex: Male

DRUGS (4)
  1. PROCORALAN [Concomitant]
     Active Substance: IVABRADINE
     Indication: PRODUCT USED FOR UNKNOWN INDICATION
     Route: 065
  2. CORVASAL [Concomitant]
     Active Substance: LINSIDOMINE
     Indication: PRODUCT USED FOR UNKNOWN INDICATION
     Route: 065
  3. ENTRESTO [Suspect]
     Active Substance: SACUBITRIL\VALSARTAN
     Indication: PRODUCT USED FOR UNKNOWN INDICATION
     Dosage: 100 MG (49 MG SACUBITRIL/51 MG VALSARTAN), BID
     Route: 048
     Dates: start: 20170120, end: 20170726
  4. LASIX [Concomitant]
     Active Substance: FUROSEMIDE
     Indication: PRODUCT USED FOR UNKNOWN INDICATION
     Dosage: HIGH DOSE
     Route: 065

REACTIONS (14)
  - Gait disturbance [Unknown]
  - Cardiovascular insufficiency [Unknown]
  - Ejection fraction decreased [Unknown]
  - Brain injury [Unknown]
  - Fall [Recovering/Resolving]
  - Pulmonary haemorrhage [Recovering/Resolving]
  - Cerebrovascular accident [Recovering/Resolving]
  - Pain [Unknown]
  - Eating disorder [Unknown]
  - Sensory loss [Unknown]
  - Motor dysfunction [Unknown]
  - Hypoaesthesia [Unknown]
  - Multiple organ dysfunction syndrome [Fatal]
  - Balance disorder [Unknown]

NARRATIVE: CASE EVENT DATE: 20170726
